FAERS Safety Report 13628614 (Version 4)
Quarter: 2017Q2

REPORT INFORMATION
  Report Type: Spontaneous
  Country: US (occurrence: US)
  Receive Date: 20170607
  Receipt Date: 20170623
  Transmission Date: 20170830
  Serious: Yes (Other)
  Sender: FDA-Public Use
  Company Number: US-JNJFOC-20170601531

PATIENT
  Age: 64 Year
  Sex: Male

DRUGS (3)
  1. LISINOPRIL. [Concomitant]
     Active Substance: LISINOPRIL
     Indication: HYPERTENSION
     Route: 065
  2. XARELTO [Suspect]
     Active Substance: RIVAROXABAN
     Indication: CEREBROVASCULAR ACCIDENT PROPHYLAXIS
     Dosage: STARTED 2 MONTHS AGO
     Route: 048
     Dates: start: 2017, end: 20170525
  3. XARELTO [Suspect]
     Active Substance: RIVAROXABAN
     Indication: ATRIAL FIBRILLATION
     Dosage: STARTED 2 MONTHS AGO
     Route: 048
     Dates: start: 2017, end: 20170525

REACTIONS (2)
  - Nephrolithiasis [Unknown]
  - Haematuria [Unknown]

NARRATIVE: CASE EVENT DATE: 2017
